FAERS Safety Report 6699120-0 (Version None)
Quarter: 2010Q2

REPORT INFORMATION
  Report Type: 
  Country: None (occurrence: None)
  Receive Date: 20100427
  Receipt Date: 20100421
  Transmission Date: 20101027
  Serious: Yes (Other)
  Sender: FDA-Public Use
  Company Number: IE-ASTRAZENECA-2010SE17838

PATIENT
  Sex: Female

DRUGS (4)
  1. CRESTOR [Suspect]
     Indication: HYPERCHOLESTEROLAEMIA
     Route: 048
  2. SURMONTIL [Concomitant]
  3. ZYPREXA [Concomitant]
  4. NEXIUM [Concomitant]

REACTIONS (3)
  - CONSTIPATION [None]
  - DRY MOUTH [None]
  - NAUSEA [None]
